FAERS Safety Report 8002599-5 (Version None)
Quarter: 2011Q4

REPORT INFORMATION
  Report Type: 
  Country: None (occurrence: None)
  Receive Date: 20111220
  Receipt Date: 20111205
  Transmission Date: 20120403
  Serious: Yes (Other)
  Sender: FDA-Public Use
  Company Number: 2011-536

PATIENT
  Age: 52 Year
  Sex: Female
  Weight: 59 kg

DRUGS (2)
  1. ELESTRIN [Suspect]
     Indication: MENOPAUSAL SYMPTOMS
     Dosage: 1 PUMP, QD, TOPICAL
     Route: 061
     Dates: start: 20110815, end: 20111014
  2. PROGESTERONE [Concomitant]

REACTIONS (2)
  - OESTRADIOL INCREASED [None]
  - OESTRONE INCREASED [None]
